FAERS Safety Report 25502791 (Version 1)
Quarter: 2025Q3

REPORT INFORMATION
  Report Type: Spontaneous
  Country: EU (occurrence: EU)
  Receive Date: 20250702
  Receipt Date: 20250702
  Transmission Date: 20251020
  Serious: Yes (Other)
  Sender: SANDOZ
  Company Number: None

PATIENT
  Age: 68 Year
  Sex: Male
  Weight: 88.9 kg

DRUGS (16)
  1. AXICABTAGENE CILOLEUCEL [Suspect]
     Active Substance: AXICABTAGENE CILOLEUCEL
     Indication: Diffuse large B-cell lymphoma
     Dosage: 68 ML, QD
     Route: 065
     Dates: start: 20200303, end: 20200303
  2. CYCLOPHOSPHAMIDE [Suspect]
     Active Substance: CYCLOPHOSPHAMIDE
     Indication: Bone marrow conditioning regimen
     Dosage: 1060 MG, QD (LAST DOSE RECEIVED ON 29 FEB 2020)
     Route: 042
     Dates: start: 20200227
  3. DECADRON (DEXAMETHASONE SODIUM PHOSPHATE) [Suspect]
     Active Substance: DEXAMETHASONE SODIUM PHOSPHATE
     Dosage: 10 MG, QD
     Route: 042
     Dates: start: 20200308, end: 20200308
  4. DECADRON (DEXAMETHASONE SODIUM PHOSPHATE) [Suspect]
     Active Substance: DEXAMETHASONE SODIUM PHOSPHATE
     Dosage: 10 MG, QD
     Route: 042
     Dates: start: 20200311
  5. DECADRON (DEXAMETHASONE SODIUM PHOSPHATE) [Suspect]
     Active Substance: DEXAMETHASONE SODIUM PHOSPHATE
     Indication: Chemotherapy
     Dosage: 10 MG, QID
     Route: 048
     Dates: start: 20200114, end: 20200117
  6. DECADRON (DEXAMETHASONE SODIUM PHOSPHATE) [Suspect]
     Active Substance: DEXAMETHASONE SODIUM PHOSPHATE
     Dosage: 10 MG, QID
     Route: 048
     Dates: start: 20200214, end: 20200217
  7. FLUDARABINE PHOSPHATE [Suspect]
     Active Substance: FLUDARABINE PHOSPHATE
     Indication: Bone marrow conditioning regimen
     Dosage: 32.5 MG, QD
     Route: 042
     Dates: start: 20200227
  8. MESNA [Suspect]
     Active Substance: MESNA
     Indication: Prophylaxis
     Dosage: 400 MG, TID
     Route: 042
     Dates: start: 20200227, end: 20200227
  9. MESNA [Suspect]
     Active Substance: MESNA
     Dosage: 400 MG, TID
     Route: 042
     Dates: start: 20200227, end: 20200301
  10. MESNA [Suspect]
     Active Substance: MESNA
     Dosage: 400 MG, TID
     Route: 042
     Dates: start: 20200301
  11. ACETAMINOPHEN [Suspect]
     Active Substance: ACETAMINOPHEN
     Indication: Pyrexia
     Route: 048
     Dates: start: 20200303, end: 20200310
  12. ACETAMINOPHEN [Suspect]
     Active Substance: ACETAMINOPHEN
     Route: 048
     Dates: start: 20200310
  13. TOCILIZUMAB [Suspect]
     Active Substance: TOCILIZUMAB
     Indication: Cytokine release syndrome
     Dosage: 699.2 MG, QD
     Route: 042
     Dates: start: 20200306, end: 20200308
  14. HYDROCHLOROTHIAZIDE [Concomitant]
     Active Substance: HYDROCHLOROTHIAZIDE
     Indication: Diuretic therapy
     Route: 048
     Dates: start: 20200227
  15. OMEPRAZOLE [Concomitant]
     Active Substance: OMEPRAZOLE
     Indication: Product used for unknown indication
     Dosage: 40 MG, QD
     Route: 048
     Dates: start: 20200228
  16. POTASSIUM CHLORIDE\SODIUM CHLORIDE [Concomitant]
     Active Substance: POTASSIUM CHLORIDE\SODIUM CHLORIDE
     Indication: Product used for unknown indication
     Route: 065
     Dates: start: 20200309, end: 20200309

REACTIONS (12)
  - Cytokine release syndrome [Recovered/Resolved]
  - Neutrophil count decreased [Recovered/Resolved]
  - Atrial fibrillation [Recovered/Resolved with Sequelae]
  - Neurotoxicity [Recovered/Resolved]
  - Hypertension [Recovered/Resolved]
  - Dysgeusia [Recovered/Resolved]
  - Abdominal pain upper [Not Recovered/Not Resolved]
  - Hyperhidrosis [Recovered/Resolved]
  - Hepatic enzyme increased [Recovered/Resolved]
  - Diarrhoea [Recovered/Resolved]
  - Hypertension [Recovered/Resolved]
  - Headache [Recovered/Resolved]
